FAERS Safety Report 7593823-1 (Version None)
Quarter: 2011Q3

REPORT INFORMATION
  Report Type: 
  Country: None (occurrence: None)
  Receive Date: 20110706
  Receipt Date: 20110630
  Transmission Date: 20111222
  Serious: Yes (Hospitalization, Other)
  Sender: FDA-Public Use
  Company Number: AU-JNJFOC-20110610535

PATIENT
  Sex: Male

DRUGS (8)
  1. ATACAND [Concomitant]
     Indication: ILL-DEFINED DISORDER
  2. PANTOPRAZOLE [Concomitant]
     Indication: ILL-DEFINED DISORDER
  3. STELARA [Suspect]
     Route: 058
     Dates: start: 20110408
  4. WARFARIN SODIUM [Concomitant]
     Indication: ILL-DEFINED DISORDER
  5. TOPROL-XL [Concomitant]
     Indication: ILL-DEFINED DISORDER
  6. FUROSEMIDE [Concomitant]
     Indication: ILL-DEFINED DISORDER
  7. STELARA [Suspect]
     Indication: PSORIASIS
     Route: 058
     Dates: start: 20101217
  8. STELARA [Suspect]
     Route: 058
     Dates: start: 20110115

REACTIONS (4)
  - UPPER RESPIRATORY TRACT INFECTION [None]
  - GASTROENTERITIS [None]
  - ATRIAL FIBRILLATION [None]
  - GLYCOGEN STORAGE DISEASE TYPE II [None]
